FAERS Safety Report 9191333 (Version 3)
Quarter: 2016Q1

REPORT INFORMATION
  Report Type: Spontaneous
  Country: DE (occurrence: DE)
  Receive Date: 20130326
  Receipt Date: 20160212
  Transmission Date: 20160526
  Serious: Yes (Life-Threatening, Hospitalization, Disabling, Other)
  Sender: FDA-Public Use
  Company Number: DE-BRISTOL-MYERS SQUIBB COMPANY-18591859

PATIENT
  Sex: Male
  Weight: 78 kg

DRUGS (1)
  1. DIDANOSINE. [Suspect]
     Active Substance: DIDANOSINE
     Indication: HIV INFECTION
     Dosage: UNK
     Route: 048
     Dates: end: 2008

REACTIONS (4)
  - Oesophageal varices haemorrhage [Unknown]
  - Off label use [Unknown]
  - Splenomegaly [Unknown]
  - Portal hypertension [Unknown]

NARRATIVE: CASE EVENT DATE: 2008
